FAERS Safety Report 9029147 (Version 1)
Quarter: 2013Q1

REPORT INFORMATION
  Report Type: Spontaneous
  Country: US (occurrence: US)
  Receive Date: 20130124
  Receipt Date: 20130124
  Transmission Date: 20140127
  Serious: Yes (Hospitalization)
  Sender: FDA-Public Use
  Company Number: US-BAYER-2013-005131

PATIENT
  Sex: Male

DRUGS (17)
  1. BAYER GENUINE ASPIRIN ORIGINAL STRENGTH [Suspect]
     Dosage: 81 MG, QD
     Route: 048
  2. BISOPROLOL FUMARATE [Suspect]
     Dosage: QD
     Route: 048
  3. DEGARELIX [Suspect]
     Dosage: 80 MG, Q1MON
     Route: 058
     Dates: end: 20120920
  4. MULTIVITAMIN [Suspect]
     Dosage: 1 DF, QD
     Route: 048
  5. ZOMETA [Suspect]
     Dosage: 4 MG, EVERY 3 MONTHS
     Route: 042
  6. ALPRAZOLAM [Suspect]
     Indication: SLEEP DISORDER
     Dosage: 0.25 MG, QD
     Route: 048
  7. KLOR-CON [Suspect]
     Dosage: 20 MILLIEQUIVALENT, QD
     Route: 048
  8. TESSALON PERLE [Suspect]
     Dosage: 1-2 CAPSULES, PRN
     Route: 048
  9. CLARITIN [Suspect]
     Dosage: 10 MG, QD
     Route: 048
  10. OXYCODONE [Suspect]
     Indication: PAIN
     Dosage: 5-10 MG, Q4HR AS NEEDED
     Route: 048
  11. DASATINIB [Suspect]
     Indication: PROSTATE CANCER
     Dosage: 70 MG, QD
     Route: 048
     Dates: start: 20120105
  12. ABIRATERONE [Suspect]
     Indication: PROSTATE CANCER
     Dosage: 1000 MG, QD
     Route: 048
     Dates: start: 20110915
  13. METOPROLOL TARTRATE [Concomitant]
     Dosage: UNK
  14. PREDNISONE [Concomitant]
  15. REGLAN [Concomitant]
  16. CARAFATE [Concomitant]
  17. DEGARELIX [Concomitant]

REACTIONS (2)
  - Pain [None]
  - Renal failure acute [None]
